FAERS Safety Report 22659882 (Version 1)
Quarter: 2023Q2

REPORT INFORMATION
  Report Type: Report from Study
  Country: CA (occurrence: CA)
  Receive Date: 20230630
  Receipt Date: 20230630
  Transmission Date: 20230721
  Serious: Yes (Hospitalization, Other)
  Sender: FDA-Public Use
  Company Number: CA-HLS-202301588

PATIENT
  Age: 29 Year
  Sex: Male

DRUGS (4)
  1. CLOZARIL [Suspect]
     Active Substance: CLOZAPINE
     Indication: Product used for unknown indication
     Route: 048
  2. RISPERIDONE [Concomitant]
     Active Substance: RISPERIDONE
     Indication: Product used for unknown indication
     Route: 065
  3. LITHIUM [Concomitant]
     Active Substance: LITHIUM
     Indication: Product used for unknown indication
     Route: 065
  4. VALPROATE [Concomitant]
     Active Substance: VALPROIC ACID
     Indication: Product used for unknown indication
     Route: 065

REACTIONS (13)
  - Electrocardiogram T wave abnormal [Unknown]
  - Dehydration [Unknown]
  - Gastroenteritis [Unknown]
  - Blood pressure increased [Unknown]
  - Cognitive disorder [Unknown]
  - Tremor [Unknown]
  - Salivary hypersecretion [Unknown]
  - Mania [Unknown]
  - Mean cell haemoglobin concentration increased [Unknown]
  - Mean platelet volume increased [Unknown]
  - Sinus tachycardia [Unknown]
  - Drug level decreased [Unknown]
  - Substance abuse [Unknown]

NARRATIVE: CASE EVENT DATE: 20200101
